FAERS Safety Report 24697718 (Version 1)
Quarter: 2024Q4

REPORT INFORMATION
  Report Type: Other
  Country: AU (occurrence: AU)
  Receive Date: 20241204
  Receipt Date: 20241204
  Transmission Date: 20250115
  Serious: Yes (Life-Threatening)
  Sender: B BRAUN
  Company Number: AU-B.Braun Medical Inc.-2166494

PATIENT
  Age: 38 Year
  Sex: Female

DRUGS (12)
  1. DEXTROSE\LIDOCAINE HYDROCHLORIDE [Suspect]
     Active Substance: DEXTROSE\LIDOCAINE HYDROCHLORIDE
     Indication: Ventricular tachycardia
  2. AMIODARONE [Suspect]
     Active Substance: AMIODARONE
  3. RAMIPRIL [Concomitant]
     Active Substance: RAMIPRIL
  4. BISOPROLOL FUMARATE [Concomitant]
     Active Substance: BISOPROLOL FUMARATE
  5. WARFARIN [Concomitant]
     Active Substance: WARFARIN
  6. PREDNISOLONE [Concomitant]
     Active Substance: PREDNISOLONE
  7. METHYLPREDNISOLONE [Concomitant]
     Active Substance: METHYLPREDNISOLONE
  8. ESMOLOL [Suspect]
     Active Substance: ESMOLOL HYDROCHLORIDE
  9. FLECAINIDE [Suspect]
     Active Substance: FLECAINIDE
  10. MEXILETINE [Suspect]
     Active Substance: MEXILETINE
  11. PROCAINAMIDE HYDROCHLORIDE [Suspect]
     Active Substance: PROCAINAMIDE HYDROCHLORIDE
  12. ISOPROTERENOL HYDROCHLORIDE [Suspect]
     Active Substance: ISOPROTERENOL HYDROCHLORIDE

REACTIONS (1)
  - Drug ineffective [Unknown]
